FAERS Safety Report 11110402 (Version 1)
Quarter: 2015Q2

REPORT INFORMATION
  Report Type: Report from Study
  Country: US (occurrence: US)
  Receive Date: 20150513
  Receipt Date: 20150513
  Transmission Date: 20150821
  Serious: Yes (Hospitalization)
  Sender: FDA-Public Use
  Company Number: US-ACTELION-A-US2015-116484

PATIENT
  Age: 54 Year
  Sex: Male

DRUGS (5)
  1. FLOLAN [Concomitant]
     Active Substance: EPOPROSTENOL SODIUM
  2. ADCIRCA [Concomitant]
     Active Substance: TADALAFIL
  3. VELETRI [Suspect]
     Active Substance: EPOPROSTENOL
     Indication: PULMONARY HYPERTENSION
     Dosage: 46 NG/KG, PER MIN
     Route: 042
     Dates: start: 20150411, end: 201505
  4. WARFARIN [Concomitant]
     Active Substance: WARFARIN
  5. REMODULIN [Concomitant]
     Active Substance: TREPROSTINIL

REACTIONS (13)
  - Ascites [Unknown]
  - Catheter site haemorrhage [Unknown]
  - Hypotension [Unknown]
  - Oedema peripheral [Unknown]
  - Decreased appetite [Unknown]
  - Fall [Unknown]
  - Depression [Unknown]
  - Renal disorder [Unknown]
  - Asthenia [Unknown]
  - Diarrhoea [Unknown]
  - Dyspnoea exertional [Unknown]
  - Right ventricular failure [Unknown]
  - Fatigue [Unknown]

NARRATIVE: CASE EVENT DATE: 20150427
